FAERS Safety Report 5249744-2 (Version None)
Quarter: 2007Q1

REPORT INFORMATION
  Report Type: 
  Country: None (occurrence: None)
  Receive Date: 20070228
  Receipt Date: 20061019
  Transmission Date: 20070707
  Serious: No
  Sender: FDA-Public Use
  Company Number: US-GLAXOSMITHKLINE-A0624231A

PATIENT
  Sex: Male

DRUGS (7)
  1. IMITREX [Suspect]
     Indication: CLUSTER HEADACHE
     Dosage: 2INJ TWICE PER DAY
     Route: 058
  2. VERAPAMIL [Concomitant]
  3. DEPAKOTE [Concomitant]
  4. KLONOPIN [Concomitant]
  5. ADVAIR DISKUS 100/50 [Concomitant]
  6. ALBUTEROL [Concomitant]
  7. PAIN MEDICATION [Concomitant]

REACTIONS (3)
  - ILL-DEFINED DISORDER [None]
  - PHARMACEUTICAL PRODUCT COMPLAINT [None]
  - WEIGHT INCREASED [None]
